FAERS Safety Report 5815961-3 (Version None)
Quarter: 2008Q3

REPORT INFORMATION
  Report Type: 
  Country: None (occurrence: None)
  Receive Date: 20080721
  Receipt Date: 20080709
  Transmission Date: 20090109
  Serious: Yes (Other)
  Sender: FDA-Public Use
  Company Number: PHBS2008CN05088

PATIENT
  Age: 45 Year
  Sex: Male

DRUGS (2)
  1. TELBIVUDINE [Suspect]
     Indication: HEPATITIS B
     Dosage: 600 MG, BID
  2. TELBIVUDINE [Suspect]
     Indication: HEPATIC CIRRHOSIS

REACTIONS (10)
  - ARRHYTHMIA [None]
  - BLOOD CREATINE PHOSPHOKINASE INCREASED [None]
  - HYPERSPLENISM [None]
  - HYPOAESTHESIA [None]
  - MUSCULAR WEAKNESS [None]
  - MUSCULOSKELETAL PAIN [None]
  - MYALGIA [None]
  - MYOPATHY [None]
  - NEURALGIA [None]
  - PLATELET COUNT DECREASED [None]
